FAERS Safety Report 5734935-4 (Version None)
Quarter: 2008Q2

REPORT INFORMATION
  Report Type: 
  Country: None (occurrence: None)
  Receive Date: 20080508
  Receipt Date: 20080502
  Transmission Date: 20081010
  Serious: Yes (Hospitalization, Other)
  Sender: FDA-Public Use
  Company Number: CLOF-1000147

PATIENT
  Age: 60 Year
  Sex: Male
  Weight: 89.5 kg

DRUGS (20)
  1. CLOLAR [Suspect]
     Indication: MYELODYSPLASTIC SYNDROME
     Dosage: 40 MG/M2, QDX5, INTRAVENOUS
     Route: 042
     Dates: start: 20080318, end: 20080322
  2. CYTARABINE [Suspect]
     Indication: MYELODYSPLASTIC SYNDROME
     Dosage: 1 G/M2, QDX5, INTRAVENOUS
     Route: 042
     Dates: start: 20080318, end: 20080322
  3. THYMOGLOBULINE (ANTITHYMOCYTE IMMUNOGLOBULIN) SOLUTION FOR INFUSION [Suspect]
     Indication: MYELODYSPLASTIC SYNDROME
     Dosage: 1 MG/M2, ONCE, INTRAVENOUS; 2.5 MG/KG, QD, INTRAVENOUS
     Route: 042
     Dates: start: 20080320, end: 20080320
  4. NORVASC [Concomitant]
  5. CEFEPIME [Concomitant]
  6. NEXIUM [Concomitant]
  7. FLUCONAZOLE [Concomitant]
  8. FLONASE [Concomitant]
  9. COMPAZINE [Concomitant]
  10. LASIX [Concomitant]
  11. METOPROLOL (HYDROCHLOROTHIAZIDE) [Concomitant]
  12. FLAGYL [Concomitant]
  13. TACROLIMUS [Concomitant]
  14. FLOMAX (MORNIFLUMATE) [Concomitant]
  15. AMBIEN [Concomitant]
  16. VALACYCLOVIR [Concomitant]
  17. VANCOMYCIN [Concomitant]
  18. LORAZEPAM [Concomitant]
  19. MAGNESIUM SULFATE [Concomitant]
  20. MORPHINE [Concomitant]

REACTIONS (12)
  - BLOOD URIC ACID INCREASED [None]
  - BONE MARROW TRANSPLANT [None]
  - CHEST PAIN [None]
  - DIARRHOEA [None]
  - DILATATION VENTRICULAR [None]
  - DYSPNOEA [None]
  - EBSTEIN'S ANOMALY [None]
  - LIVER FUNCTION TEST ABNORMAL [None]
  - OEDEMA [None]
  - PERICARDIAL EFFUSION [None]
  - RASH [None]
  - TACHYCARDIA [None]
